FAERS Safety Report 8181025-X (Version None)
Quarter: 2012Q1

REPORT INFORMATION
  Report Type: 
  Country: None (occurrence: None)
  Receive Date: 20120302
  Receipt Date: 20120224
  Transmission Date: 20120608
  Serious: Yes (Other)
  Sender: FDA-Public Use
  Company Number: JP-PFIZER INC-2012048862

PATIENT
  Sex: Male

DRUGS (3)
  1. XALATAN [Suspect]
     Indication: GLAUCOMA
  2. XALATAN [Suspect]
     Indication: OCULAR HYPERTENSION
  3. AZOPT [Concomitant]

REACTIONS (1)
  - LIVER FUNCTION TEST ABNORMAL [None]
